FAERS Safety Report 8892242 (Version 1)
Quarter: 2012Q4

REPORT INFORMATION
  Report Type: 
  Country: US (occurrence: US)
  Receive Date: 20121107
  Receipt Date: 20121107
  Transmission Date: 20130627
  Serious: No
  Sender: FDA-Public Use
  Company Number: US-AMGEN-USASP2011057606

PATIENT
  Sex: Female

DRUGS (17)
  1. ENBREL [Suspect]
     Indication: PRODUCT USED FOR UNKNOWN INDICATION
     Dosage: 50 mg, qwk
  2. CALCIUM [Concomitant]
     Dosage: UNK UNK, qd
  3. OMEGA 3                            /01334101/ [Concomitant]
     Dosage: 12 mg, UNK
  4. ULTRAM [Concomitant]
     Dosage: 50 mg, UNK
  5. NEURONTIN [Concomitant]
     Dosage: 100 mg, UNK
  6. TRICOR                             /00090101/ [Concomitant]
     Dosage: 145 mg, UNK
  7. HYDROCHLOROTH [Concomitant]
     Dosage: 50 mg, UNK
  8. ZESTRIL [Concomitant]
     Dosage: 40 mg, UNK
  9. NORVASC [Concomitant]
     Dosage: 2.5 mg, UNK
  10. OMEPRAZOLE [Concomitant]
     Dosage: 20 mg, UNK
  11. MULTIVITAMINES WITH IRON           /02170101/ [Concomitant]
  12. POTASSIUM [Concomitant]
     Dosage: 95 mg, UNK
  13. PREDNISONE [Concomitant]
     Dosage: 1 mg, UNK
  14. FLONASE [Concomitant]
     Dosage: .05 UNK, UNK
  15. ASPIRIN [Concomitant]
     Dosage: 81 mg, UNK
  16. FLEXERIL                           /00428402/ [Concomitant]
     Dosage: 5 mg, UNK
  17. NIASPAN [Concomitant]
     Dosage: 500 mg, UNK

REACTIONS (1)
  - Pharyngitis streptococcal [Unknown]
